FAERS Safety Report 13182605 (Version 1)
Quarter: 2017Q1

REPORT INFORMATION
  Report Type: Report from Study
  Country: CA (occurrence: CA)
  Receive Date: 20170202
  Receipt Date: 20170202
  Transmission Date: 20170428
  Serious: Yes (Hospitalization, Other)
  Sender: FDA-Public Use
  Company Number: CA-BEH-2017077752

PATIENT
  Age: 47 Year
  Sex: Female

DRUGS (2)
  1. FIRAZYR [Concomitant]
     Active Substance: ICATIBANT ACETATE
     Route: 065
  2. BERINERT [Suspect]
     Active Substance: HUMAN C1-ESTERASE INHIBITOR
     Indication: HEREDITARY ANGIOEDEMA
     Dosage: 1500 IU, QD
     Route: 058
     Dates: start: 201303

REACTIONS (4)
  - Hospitalisation [Unknown]
  - Central venous catheterisation [Unknown]
  - Poor venous access [Unknown]
  - Hereditary angioedema [Unknown]

NARRATIVE: CASE EVENT DATE: 201612
